FAERS Safety Report 17170796 (Version 2)
Quarter: 2020Q2

REPORT INFORMATION
  Report Type: Spontaneous
  Country: US (occurrence: US)
  Receive Date: 20191218
  Receipt Date: 20200515
  Transmission Date: 20200713
  Serious: Yes (Other)
  Sender: FDA-Public Use
  Company Number: US-UCBSA-2019054102

PATIENT
  Age: 15 Year
  Sex: Female
  Weight: 57.7 kg

DRUGS (4)
  1. BRIVIACT [Suspect]
     Active Substance: BRIVARACETAM
     Dosage: 100 MILLIGRAM, 2X/DAY (BID)
     Route: 048
     Dates: start: 2019, end: 201911
  2. BRIVIACT [Suspect]
     Active Substance: BRIVARACETAM
     Dosage: RESTARTED WITH SLOW TITITRATION
     Route: 048
     Dates: start: 201906, end: 2019
  3. LAMOTRIGINE. [Concomitant]
     Active Substance: LAMOTRIGINE
     Indication: PRODUCT USED FOR UNKNOWN INDICATION
  4. BRIVIACT [Suspect]
     Active Substance: BRIVARACETAM
     Indication: EPILEPSY
     Dosage: 100 MILLIGRAM, 2X/DAY (BID)
     Route: 048
     Dates: start: 201812, end: 20190103

REACTIONS (7)
  - Product availability issue [Unknown]
  - Change in seizure presentation [Recovered/Resolved]
  - Petit mal epilepsy [Unknown]
  - Headache [Unknown]
  - Nausea [Unknown]
  - Generalised tonic-clonic seizure [Recovered/Resolved]
  - Therapy cessation [Unknown]

NARRATIVE: CASE EVENT DATE: 2019
